FAERS Safety Report 20229594 (Version 2)
Quarter: 2021Q4

REPORT INFORMATION
  Report Type: Spontaneous
  Country: US (occurrence: None)
  Receive Date: 20211225
  Receipt Date: 20211231
  Transmission Date: 20220303
  Serious: Yes (Death)
  Sender: FDA-Public Use
  Company Number: US-ROCHE-2983334

PATIENT
  Age: 57 Year
  Sex: Male
  Weight: 126 kg

DRUGS (2)
  1. ACTEMRA [Suspect]
     Active Substance: TOCILIZUMAB
     Indication: COVID-19
     Route: 040
     Dates: start: 20211128, end: 20211128
  2. DEXAMETHASONE [Concomitant]
     Active Substance: DEXAMETHASONE
     Dates: start: 20211128, end: 20211208

REACTIONS (2)
  - Death [Fatal]
  - Off label use [Fatal]
